FAERS Safety Report 8211020-3 (Version None)
Quarter: 2012Q1

REPORT INFORMATION
  Report Type: 
  Country: None (occurrence: None)
  Receive Date: 20120229
  Receipt Date: 20120223
  Transmission Date: 20120608
  Serious: Yes (Other)
  Sender: FDA-Public Use
  Company Number: CPI 3111

PATIENT
  Age: 47 Year
  Sex: Female

DRUGS (1)
  1. NAC MANUFACTURER UNKNOWN [Suspect]
     Indication: PSEUDOPORPHYRIA
     Dosage: 1200 MG/DAY

REACTIONS (2)
  - SCAR [None]
  - SCLERODERMA [None]
